FAERS Safety Report 13915501 (Version 1)
Quarter: 2017Q3

REPORT INFORMATION
  Report Type: Spontaneous
  Country: US (occurrence: None)
  Receive Date: 20170827
  Receipt Date: 20170827
  Transmission Date: 20171127
  Serious: No
  Sender: FDA-Public Use
  Company Number: None

PATIENT
  Age: 77 Year
  Sex: Male

DRUGS (1)
  1. DUPIXENT [Suspect]
     Active Substance: DUPILUMAB
     Indication: DERMATITIS ATOPIC
     Route: 058
     Dates: start: 20170603

REACTIONS (4)
  - Eye infection [None]
  - Ocular hyperaemia [None]
  - Eye swelling [None]
  - Vision blurred [None]

NARRATIVE: CASE EVENT DATE: 20170814
